FAERS Safety Report 4321154-1 (Version None)
Quarter: 2004Q1

REPORT INFORMATION
  Report Type: 
  Country: None (occurrence: None)
  Receive Date: 20040315
  Receipt Date: 20031029
  Transmission Date: 20041129
  Serious: Yes (Other)
  Sender: FDA-Public Use
  Company Number: PHEH2003US09935

PATIENT
  Age: 55 Year
  Sex: Female

DRUGS (9)
  1. TRILEPTAL [Suspect]
     Indication: CONVULSION
     Dosage: 900 MG, QD, ORAL
     Route: 048
     Dates: start: 19990701
  2. SYNTHROID [Concomitant]
  3. ATACAND [Concomitant]
  4. KLONOPIN [Concomitant]
  5. LEXAPRO /USA/(ESCITALOPRAM) [Concomitant]
  6. TIAZAC [Concomitant]
  7. SEROQUEL [Concomitant]
  8. ANTIPSYCHOTICS [Concomitant]
  9. DILANTIN [Concomitant]

REACTIONS (1)
  - HYPONATRAEMIA [None]
